FAERS Safety Report 9924815 (Version 2)
Quarter: 2014Q1

REPORT INFORMATION
  Report Type: Report from Study
  Country: US (occurrence: US)
  Receive Date: 20140226
  Receipt Date: 20140304
  Transmission Date: 20141002
  Serious: Yes (Death)
  Sender: FDA-Public Use
  Company Number: US-PURDUE-USA-2014-0111453

PATIENT
  Age: 39 Year
  Sex: Male

DRUGS (2)
  1. OXY CR TAB [Suspect]
     Indication: CANCER PAIN
     Dosage: 40 MG, Q12H
     Route: 048
     Dates: start: 20140212, end: 20140218
  2. OXY CR TAB [Suspect]
     Dosage: UNK
     Route: 048
     Dates: start: 20131122

REACTIONS (1)
  - Malignant neoplasm progression [Fatal]
